FAERS Safety Report 5338661-5 (Version None)
Quarter: 2007Q2

REPORT INFORMATION
  Report Type: 
  Country: None (occurrence: None)
  Receive Date: 20070530
  Receipt Date: 20060419
  Transmission Date: 20071010
  Serious: No
  Sender: FDA-Public Use
  Company Number: A0602467A

PATIENT
  Sex: Female

DRUGS (6)
  1. VENTOLIN [Suspect]
     Indication: ASTHMA
     Dosage: 2PUFF AS REQUIRED
     Route: 055
  2. ADVAIR DISKUS 100/50 [Concomitant]
  3. SINGULAIR [Concomitant]
  4. ZYRTEC [Concomitant]
  5. LEVAQUIN [Concomitant]
  6. INSULIN [Concomitant]

REACTIONS (1)
  - DRUG SCREEN POSITIVE [None]
